FAERS Safety Report 8388274-6 (Version None)
Quarter: 2012Q2

REPORT INFORMATION
  Report Type: 
  Country: None (occurrence: None)
  Receive Date: 20120525
  Receipt Date: 20120518
  Transmission Date: 20120825
  Serious: Yes (Death, Life-Threatening, Hospitalization, Other)
  Sender: FDA-Public Use
  Company Number: US-MPIJNJ-2012-03091

PATIENT
  Sex: Male
  Weight: 21.3 kg

DRUGS (4)
  1. MESNA [Suspect]
     Indication: PRODUCT USED FOR UNKNOWN INDICATION
  2. FLUDARABINE PHOSPHATE [Suspect]
     Indication: PRODUCT USED FOR UNKNOWN INDICATION
  3. VELCADE [Suspect]
     Indication: B-CELL LYMPHOMA
     Dosage: 1.3 MG/M2, CYCLIC
     Route: 042
     Dates: start: 20111227, end: 20120106
  4. CYTOXAN [Suspect]
     Indication: PRODUCT USED FOR UNKNOWN INDICATION

REACTIONS (9)
  - HYPOTENSION [None]
  - RENAL FAILURE ACUTE [None]
  - ALANINE AMINOTRANSFERASE INCREASED [None]
  - ROSEOLOVIRUS TEST POSITIVE [None]
  - PANCYTOPENIA [None]
  - ASPARTATE AMINOTRANSFERASE INCREASED [None]
  - VENOOCCLUSIVE LIVER DISEASE [None]
  - ACUTE RESPIRATORY DISTRESS SYNDROME [None]
  - B-CELL LYMPHOMA [None]
